FAERS Safety Report 9384699 (Version 4)
Quarter: 2013Q4

REPORT INFORMATION
  Report Type: Spontaneous
  Country: AU (occurrence: None)
  Receive Date: 20130701
  Receipt Date: 20131021
  Transmission Date: 20140711
  Serious: Yes (Other)
  Sender: FDA-Public Use
  Company Number: 2013AU001813

PATIENT
  Age: 61 Year
  Sex: Male
  Weight: 117 kg

DRUGS (17)
  1. PONATINIB [Suspect]
     Indication: CHRONIC MYELOID LEUKAEMIA
     Route: 048
     Dates: start: 20110328
  2. CANDESARTAN CLIEXETIL (CANDESARTAN CLIEXETIL) [Concomitant]
  3. COLOXYL WITH SENNA (DOCUSATE SODIUM, SENNOSIDE A+B) [Concomitant]
  4. MODURETIC (AMILORIDE HYDROCHLORIDE, HYDROCHLOROTHIAZIDE) [Concomitant]
  5. INSULIN GLARGINE (INSULIN GLARGINE) [Concomitant]
  6. MOVICOL [Concomitant]
  7. ASPIRIN (ASPIRIN) [Concomitant]
  8. VOLTAREN (DICLOFENAC) [Concomitant]
  9. METROPROLOL (METOPROLOL TARTRATE) [Concomitant]
  10. ATORVASTATIN (ATORVASTATIN) [Concomitant]
  11. NOVORAPID (INSULIN ASPART) [Concomitant]
  12. NIFEDIPINE (NIFEDIPINE) [Concomitant]
  13. PANADEINE (CODEINE PHOSPHATE, PARACETAMOL) [Concomitant]
  14. DIAZEPAM (DIAZEPAM) [Concomitant]
  15. OXYCODONE (OXYCODONE) [Concomitant]
  16. MS CONTIN [Concomitant]
  17. BISALAX (BISACODYL) [Concomitant]

REACTIONS (2)
  - Peripheral artery stenosis [None]
  - Myocardial ischaemia [None]
